FAERS Safety Report 5317841-9 (Version None)
Quarter: 2007Q2

REPORT INFORMATION
  Report Type: 
  Country: None (occurrence: None)
  Receive Date: 20070430
  Receipt Date: 20070424
  Transmission Date: 20071010
  Serious: Yes (Other)
  Sender: FDA-Public Use
  Company Number: 155683USA

PATIENT
  Age: 34 Year
  Sex: Male

DRUGS (4)
  1. PIMOZIDE TABLETS (PIMOZIDE) [Suspect]
  2. FLUPHENAZINE DECANOATE [Suspect]
  3. CARBAMAZEPINE [Concomitant]
  4. PROPRANOLOL [Concomitant]

REACTIONS (4)
  - NEUROLEPTIC MALIGNANT SYNDROME [None]
  - PARKINSON'S DISEASE [None]
  - SALIVARY HYPERSECRETION [None]
  - THERAPY RESPONDER [None]
